FAERS Safety Report 9451141 (Version 1)
Quarter: 2013Q3

REPORT INFORMATION
  Report Type: Report from Study
  Country: US (occurrence: US)
  Receive Date: 20130809
  Receipt Date: 20130809
  Transmission Date: 20140515
  Serious: Yes (Other)
  Sender: FDA-Public Use
  Company Number: US-ABBOTT-13P-163-1114843-00

PATIENT
  Sex: Female

DRUGS (16)
  1. HUMIRA [Suspect]
     Indication: RHEUMATOID ARTHRITIS
     Dates: start: 20130121, end: 20130507
  2. LEVOTHYROXINE [Concomitant]
     Indication: HYPOTHYROIDISM
     Dosage: DAILY
  3. HYDROCHLOROTHIAZIDE [Concomitant]
     Indication: PERICARDIAL EFFUSION
  4. LOSARTAN [Concomitant]
     Indication: HYPERTENSION
  5. PREDNISONE [Concomitant]
     Indication: RHEUMATOID ARTHRITIS
     Route: 048
  6. ZOLOFT [Concomitant]
     Indication: DEPRESSION
  7. COREG [Concomitant]
     Indication: CARDIAC DISORDER
  8. COUMADIN [Concomitant]
     Indication: CARDIOVASCULAR DISORDER
     Route: 048
  9. SINGULAIR [Concomitant]
     Indication: ASTHMA
     Route: 048
  10. ALTACE [Concomitant]
     Indication: HYPERTENSION
     Route: 048
  11. VITAMIN D3 [Concomitant]
     Indication: VITAMIN D DECREASED
     Route: 048
  12. CALCIUM [Concomitant]
     Indication: OSTEOPOROSIS
  13. BENADRYL [Concomitant]
     Indication: HYPERSENSITIVITY
     Route: 048
  14. VENTOLIN [Concomitant]
     Indication: ASTHMA
  15. TRAMADOL [Concomitant]
     Indication: PAIN
     Dosage: 1 TO 2 TABLETS DAILY
     Route: 048
  16. CELEBREX [Concomitant]
     Indication: ARTHRALGIA
     Route: 048

REACTIONS (3)
  - Intermittent claudication [Unknown]
  - Cardiac disorder [Not Recovered/Not Resolved]
  - Peripheral vascular disorder [Not Recovered/Not Resolved]
